FAERS Safety Report 10631728 (Version 1)
Quarter: 2014Q4

REPORT INFORMATION
  Report Type: Spontaneous
  Country: US (occurrence: US)
  Receive Date: 20141205
  Receipt Date: 20141205
  Transmission Date: 20150529
  Serious: No
  Sender: FDA-Public Use
  Company Number: US-BRISTOL-MYERS SQUIBB COMPANY-21242813

PATIENT
  Age: 63 Year
  Sex: Female
  Weight: 124.71 kg

DRUGS (1)
  1. YERVOY [Suspect]
     Active Substance: IPILIMUMAB
     Indication: MALIGNANT MELANOMA
     Dates: start: 20140509

REACTIONS (8)
  - Fatigue [Unknown]
  - Muscular weakness [Unknown]
  - Headache [Unknown]
  - Neuralgia [Unknown]
  - Muscle twitching [Unknown]
  - Pruritus [Unknown]
  - Hypoaesthesia [Unknown]
  - Myalgia [Unknown]
